FAERS Safety Report 7571861-2 (Version None)
Quarter: 2011Q2

REPORT INFORMATION
  Report Type: 
  Country: None (occurrence: None)
  Receive Date: 20110624
  Receipt Date: 20100526
  Transmission Date: 20111010
  Serious: No
  Sender: FDA-Public Use
  Company Number: A0856947A

PATIENT

DRUGS (1)
  1. VERAMYST [Suspect]
     Indication: MULTIPLE ALLERGIES
     Dosage: 2SPR PER DAY
     Route: 045

REACTIONS (3)
  - PRODUCT QUALITY ISSUE [None]
  - EYE PRURITUS [None]
  - OCULAR HYPERAEMIA [None]
